FAERS Safety Report 6782574-9 (Version None)
Quarter: 2010Q2

REPORT INFORMATION
  Report Type: 
  Country: None (occurrence: None)
  Receive Date: 20100621
  Receipt Date: 20100614
  Transmission Date: 20101027
  Serious: Yes (Death)
  Sender: FDA-Public Use
  Company Number: US-GENENTECH-302711

PATIENT
  Sex: Female

DRUGS (14)
  1. RITUXIMAB [Suspect]
     Indication: B-CELL LYMPHOMA
     Dosage: 652 MG, UNK
     Route: 042
     Dates: start: 20100522, end: 20100525
  2. CYCLOPHOSPHAMIDE [Suspect]
     Indication: NON-HODGKIN'S LYMPHOMA
     Dosage: 522 MG, UNK
     Route: 042
     Dates: start: 20100522, end: 20100525
  3. MESNA [Suspect]
     Indication: NON-HODGKIN'S LYMPHOMA
     Dosage: 1044 MG, UNK
     Route: 042
     Dates: start: 20100522, end: 20100525
  4. DOXORUBICIN HCL [Suspect]
     Indication: NON-HODGKIN'S LYMPHOMA
     Dosage: 87 MG, UNK
     Route: 042
     Dates: start: 20100522, end: 20100525
  5. VINCRISTINE [Suspect]
     Indication: NON-HODGKIN'S LYMPHOMA
     Dosage: 2 MG, UNK
     Route: 042
     Dates: start: 20100522, end: 20100525
  6. DEXAMETHASONE ACETATE [Suspect]
     Indication: NON-HODGKIN'S LYMPHOMA
     Dosage: 40 MG, UNK
     Route: 048
     Dates: start: 20100522, end: 20100525
  7. NEULASTA [Suspect]
     Indication: NON-HODGKIN'S LYMPHOMA
     Dosage: 6 MG, UNK
     Route: 058
     Dates: start: 20100522, end: 20100525
  8. PROTONIX [Concomitant]
     Indication: DRUG USE FOR UNKNOWN INDICATION
     Dosage: UNK
  9. VALTREX [Concomitant]
     Indication: DRUG USE FOR UNKNOWN INDICATION
  10. FLUCONAZOLE [Concomitant]
     Indication: DRUG USE FOR UNKNOWN INDICATION
  11. LEVAQUIN [Concomitant]
     Indication: DRUG USE FOR UNKNOWN INDICATION
  12. INSULIN [Concomitant]
  13. NYSTATIN [Concomitant]
     Indication: DRUG USE FOR UNKNOWN INDICATION
  14. ONDANSETRON [Concomitant]
     Indication: DRUG USE FOR UNKNOWN INDICATION

REACTIONS (4)
  - INFECTION [None]
  - NEOPLASM MALIGNANT [None]
  - PLEURAL EFFUSION [None]
  - RESPIRATORY FAILURE [None]
